FAERS Safety Report 26010931 (Version 1)
Quarter: 2025Q4

REPORT INFORMATION
  Report Type: Report from Study
  Country: AR (occurrence: AR)
  Receive Date: 20251107
  Receipt Date: 20251107
  Transmission Date: 20260117
  Serious: Yes (Hospitalization)
  Sender: DAIICHI
  Company Number: AR-AstraZeneca-CH-00982236A

PATIENT
  Sex: Female

DRUGS (1)
  1. ENHERTU [Suspect]
     Active Substance: FAM-TRASTUZUMAB DERUXTECAN-NXKI
     Indication: HER2 positive breast cancer
     Dosage: UNK
     Route: 042

REACTIONS (4)
  - Diarrhoea [Unknown]
  - Nausea [Unknown]
  - Oropharyngeal pain [Unknown]
  - Abdominal pain upper [Unknown]
